FAERS Safety Report 5411421-2 (Version None)
Quarter: 2007Q3

REPORT INFORMATION
  Report Type: 
  Country: None (occurrence: None)
  Receive Date: 20070810
  Receipt Date: 20070806
  Transmission Date: 20080115
  Serious: Yes (Other)
  Sender: FDA-Public Use
  Company Number: FR-GENENTECH-245699

PATIENT
  Age: 83 Year
  Sex: Female

DRUGS (2)
  1. LUCENTIS [Suspect]
     Indication: MACULAR DEGENERATION
     Route: 031
  2. FLECAINIDE ACETATE [Concomitant]
     Indication: ARRHYTHMIA

REACTIONS (1)
  - BLOOD PRESSURE FLUCTUATION [None]
